FAERS Safety Report 25101863 (Version 1)
Quarter: 2025Q1

REPORT INFORMATION
  Report Type: Spontaneous
  Country: US (occurrence: US)
  Receive Date: 20250320
  Receipt Date: 20250320
  Transmission Date: 20250408
  Serious: No
  Sender: VIIV
  Company Number: US-VIIV HEALTHCARE-US2025027429

PATIENT
  Age: 44 Year
  Sex: Male

DRUGS (1)
  1. DOVATO [Suspect]
     Active Substance: DOLUTEGRAVIR SODIUM\LAMIVUDINE
     Indication: HIV infection
     Dosage: UNK UNK, QD, EXACT DOSAGE UNKNOWN
     Route: 048

REACTIONS (2)
  - Pruritus [Not Recovered/Not Resolved]
  - Blood cholesterol increased [Unknown]

NARRATIVE: CASE EVENT DATE: 20180101
